FAERS Safety Report 5751634-3 (Version None)
Quarter: 2008Q2

REPORT INFORMATION
  Report Type: 
  Country: None (occurrence: None)
  Receive Date: 20080528
  Receipt Date: 20080521
  Transmission Date: 20081010
  Serious: Yes (Hospitalization)
  Sender: FDA-Public Use
  Company Number: PHBS2008AT00983

PATIENT
  Age: 46 Year
  Sex: Male
  Weight: 92 kg

DRUGS (4)
  1. VOLTAREN [Suspect]
     Dosage: 25 MG/DAY
     Route: 048
     Dates: start: 20071203, end: 20071205
  2. VOLTAREN [Interacting]
     Dosage: 50 MG/ADY /2-3 MONTH/PER YEAR
     Route: 048
  3. AULIN [Interacting]
     Dosage: 100 MG, UNK
     Route: 048
     Dates: start: 20071007, end: 20071008
  4. MEXALEN [Concomitant]
     Indication: DEMENTIA
     Dosage: 500 MG, UNK
     Route: 048

REACTIONS (6)
  - ALANINE AMINOTRANSFERASE INCREASED [None]
  - ASPARTATE AMINOTRANSFERASE INCREASED [None]
  - BLOOD BILIRUBIN INCREASED [None]
  - CHOLESTASIS [None]
  - DRUG INTERACTION [None]
  - HEPATIC NECROSIS [None]
